FAERS Safety Report 10703155 (Version 2)
Quarter: 2015Q1

REPORT INFORMATION
  Report Type: Report from Study
  Country: GB (occurrence: GB)
  Receive Date: 20150112
  Receipt Date: 20150112
  Transmission Date: 20150721
  Serious: Yes (Death)
  Sender: FDA-Public Use
  Company Number: GB-ROCHE-1487177

PATIENT
  Age: 88 Year
  Sex: Male

DRUGS (2)
  1. RANIBIZUMAB [Suspect]
     Active Substance: RANIBIZUMAB
     Indication: AGE-RELATED MACULAR DEGENERATION
     Route: 050
     Dates: start: 20110805, end: 20110805
  2. RANIBIZUMAB [Suspect]
     Active Substance: RANIBIZUMAB
     Route: 050
     Dates: start: 20140204, end: 20140204

REACTIONS (6)
  - Urosepsis [Fatal]
  - Atrial fibrillation [Fatal]
  - Type 2 diabetes mellitus [Fatal]
  - Pneumonia [Fatal]
  - Colitis ulcerative [Fatal]
  - Cardiac failure chronic [Fatal]

NARRATIVE: CASE EVENT DATE: 20140812
